FAERS Safety Report 8278556-0 (Version None)
Quarter: 2012Q2

REPORT INFORMATION
  Report Type: 
  Country: None (occurrence: None)
  Receive Date: 20120412
  Receipt Date: 20110331
  Transmission Date: 20120825
  Serious: No
  Sender: FDA-Public Use
  Company Number: US-ASTRAZENECA-2011SE18579

PATIENT
  Age: 89 Year
  Sex: Male
  Weight: 88.5 kg

DRUGS (1)
  1. NEXIUM [Suspect]
     Indication: ABDOMINAL PAIN UPPER
     Route: 048
     Dates: start: 20110328, end: 20110101

REACTIONS (5)
  - INCORRECT DOSE ADMINISTERED [None]
  - OFF LABEL USE [None]
  - ABDOMINAL DISCOMFORT [None]
  - CIRCUMSTANCE OR INFORMATION CAPABLE OF LEADING TO MEDICATION ERROR [None]
  - DRUG DOSE OMISSION [None]
